FAERS Safety Report 16939422 (Version 1)
Quarter: 2019Q4

REPORT INFORMATION
  Report Type: Spontaneous
  Country: NL (occurrence: NL)
  Receive Date: 20191021
  Receipt Date: 20191021
  Transmission Date: 20200122
  Serious: Yes (Death, Hospitalization, Other)
  Sender: FDA-Public Use
  Company Number: NL-ALEMBIC PHARMACUETICALS LIMITED-2019SCAL000767

PATIENT

DRUGS (1)
  1. BUPROPION HYDROCHLORIDE. [Suspect]
     Active Substance: BUPROPION HYDROCHLORIDE
     Indication: DEPRESSION
     Dosage: 30 PILLS OF 300MG BUPROPION EXTENDED RELEASE
     Route: 042

REACTIONS (14)
  - Lethargy [Unknown]
  - Overdose [Fatal]
  - Bradycardia [Unknown]
  - Toxicity to various agents [Unknown]
  - Status epilepticus [Unknown]
  - Hypotension [Unknown]
  - Cardiac arrest [Unknown]
  - Suicide attempt [Unknown]
  - Neurological decompensation [Unknown]
  - Electrocardiogram QT prolonged [Unknown]
  - Condition aggravated [Unknown]
  - Electrocardiogram QRS complex prolonged [Unknown]
  - Conduction disorder [Unknown]
  - Cardiac dysfunction [Unknown]
